FAERS Safety Report 19432857 (Version 1)
Quarter: 2021Q2

REPORT INFORMATION
  Report Type: Spontaneous
  Country: FR (occurrence: FR)
  Receive Date: 20210618
  Receipt Date: 20210618
  Transmission Date: 20210717
  Serious: Yes (Hospitalization, Other)
  Sender: FDA-Public Use
  Company Number: FR-AUROBINDO-AUR-APL-2021-024981

PATIENT
  Age: 18 Year
  Sex: Female
  Weight: 49 kg

DRUGS (1)
  1. CIPROFLOXACIN. [Suspect]
     Active Substance: CIPROFLOXACIN
     Indication: CYSTITIS
     Dosage: UNK (UNSPECIFIED)
     Route: 048
     Dates: start: 20210428, end: 20210430

REACTIONS (1)
  - Encephalitis [Recovering/Resolving]

NARRATIVE: CASE EVENT DATE: 20210430
